FAERS Safety Report 4927973-2 (Version None)
Quarter: 2006Q1

REPORT INFORMATION
  Report Type: 
  Country: None (occurrence: None)
  Receive Date: 20060223
  Receipt Date: 20060210
  Transmission Date: 20060701
  Serious: Yes (Life-Threatening)
  Sender: FDA-Public Use
  Company Number: 2006022073

PATIENT
  Age: 70 Year
  Sex: Male
  Weight: 82 kg

DRUGS (9)
  1. DOXORUBICIN HCL [Suspect]
     Indication: NON-HODGKIN'S LYMPHOMA
     Dosage: 100 MG (CYCLIC), INTRAVENOUS
     Route: 042
     Dates: start: 20020601, end: 20021025
  2. PREDNISONE TAB [Suspect]
     Indication: NON-HODGKIN'S LYMPHOMA
     Dosage: 80 MG (CYCLIC), ORAL
     Route: 048
     Dates: start: 20020601, end: 20021029
  3. CYCLOPHOSPHAMIDE [Suspect]
     Indication: NON-HODGKIN'S LYMPHOMA
     Dosage: 1400 MG (CYCLIC), INTRAVENOUS
     Route: 042
     Dates: start: 20020601, end: 20021025
  4. VINCRISTINE [Suspect]
     Indication: NON-HODGKIN'S LYMPHOMA
     Dosage: 2 MG (CYCLIC), INTRAVENOUS
     Route: 042
     Dates: start: 20020601, end: 20020926
  5. MABTHERA (RITUXIMAB) [Suspect]
     Indication: NON-HODGKIN'S LYMPHOMA
     Dosage: 700 MG (CYCLIC), INTRAVENOUS
     Route: 042
     Dates: start: 20020601, end: 20020816
  6. PRETERAX (INDAPAMIDE, PERINDOPRIL ERBUMINE) [Concomitant]
  7. INDAPAMIDE [Concomitant]
  8. PRAVASTATIN [Concomitant]
  9. ASPIRIN [Concomitant]

REACTIONS (3)
  - COLON CANCER [None]
  - OBSTRUCTION [None]
  - RECTAL HAEMORRHAGE [None]
